FAERS Safety Report 4653456-3 (Version None)
Quarter: 2005Q2

REPORT INFORMATION
  Report Type: 
  Country: None (occurrence: None)
  Receive Date: 20050505
  Receipt Date: 20050428
  Transmission Date: 20051028
  Serious: Yes (Other)
  Sender: FDA-Public Use
  Company Number: CA-GLAXOSMITHKLINE-A0556682A

PATIENT
  Age: 51 Year
  Sex: Male

DRUGS (9)
  1. LEUKERAN [Suspect]
     Indication: DRUG USE FOR UNKNOWN INDICATION
     Dosage: 8MG PER DAY
     Route: 048
  2. EPREX [Suspect]
     Indication: DRUG USE FOR UNKNOWN INDICATION
     Dosage: 10000IU THREE TIMES PER WEEK
     Route: 058
  3. LEUSTATIN [Suspect]
     Indication: DRUG USE FOR UNKNOWN INDICATION
     Route: 042
  4. ALLOPURINOL [Concomitant]
  5. CHEMOTHERAPY [Concomitant]
  6. FERROUS SULFATE TAB [Concomitant]
  7. NEUPOGEN [Concomitant]
  8. RED BLOOD CELLS [Concomitant]
     Route: 042
  9. VITAMIN B-12 [Concomitant]

REACTIONS (9)
  - BLOOD BILIRUBIN INCREASED [None]
  - BLOOD LACTATE DEHYDROGENASE INCREASED [None]
  - BONE MARROW DEPRESSION [None]
  - COLD AGGLUTININS POSITIVE [None]
  - COMPLEMENT FACTOR C3 INCREASED [None]
  - DRUG INEFFECTIVE [None]
  - HAEMOLYSIS [None]
  - PANCYTOPENIA [None]
  - RED BLOOD CELL ABNORMALITY [None]
